FAERS Safety Report 4342680-5 (Version None)
Quarter: 2004Q1

REPORT INFORMATION
  Report Type: 
  Country: None (occurrence: None)
  Receive Date: 20040329
  Receipt Date: 20031121
  Transmission Date: 20041129
  Serious: No
  Sender: FDA-Public Use
  Company Number: USA031152805

PATIENT
  Age: 7 Year
  Sex: Male
  Weight: 24 kg

DRUGS (7)
  1. STRATTERA [Suspect]
     Dosage: 25 MG/DAY
     Dates: start: 20031113
  2. XOPENEX [Concomitant]
  3. FLOVENT [Concomitant]
  4. FORADIL [Concomitant]
  5. SINGULAIR [Concomitant]
  6. FLONASE [Concomitant]
  7. PRELONE (PREDNISOLONE) [Concomitant]

REACTIONS (4)
  - ASTHMA [None]
  - COUGH [None]
  - DRUG INTERACTION [None]
  - HYPERHIDROSIS [None]
